FAERS Safety Report 6343416-9 (Version None)
Quarter: 2009Q3

REPORT INFORMATION
  Report Type: 
  Country: None (occurrence: None)
  Receive Date: 20090908
  Receipt Date: 20090902
  Transmission Date: 20100115
  Serious: Yes (Death)
  Sender: FDA-Public Use
  Company Number: PHHY2009TR37329

PATIENT
  Sex: Male

DRUGS (3)
  1. TASIGNA [Suspect]
  2. CYTARABINE [Suspect]
  3. MITOXANTRONE [Concomitant]

REACTIONS (3)
  - FEBRILE NEUTROPENIA [None]
  - SEPSIS [None]
  - SEPTIC SHOCK [None]
